FAERS Safety Report 9571227 (Version 1)
Quarter: 2013Q3

REPORT INFORMATION
  Report Type: Spontaneous
  Country: US (occurrence: None)
  Receive Date: 20130927
  Receipt Date: 20130927
  Transmission Date: 20140515
  Serious: Yes (Other)
  Sender: FDA-Public Use
  Company Number: None

PATIENT
  Age: 59 Year
  Sex: Male
  Weight: 68.04 kg

DRUGS (1)
  1. LEVAQUIN [Suspect]
     Indication: APPENDICITIS PERFORATED
     Dosage: 1 TABLET ONCE DAILY TAKEN BY MOUTH
     Route: 048
     Dates: start: 20100408, end: 20100413

REACTIONS (2)
  - Convulsion [None]
  - Pain in extremity [None]
